FAERS Safety Report 4859456-2 (Version None)
Quarter: 2005Q4

REPORT INFORMATION
  Report Type: 
  Country: None (occurrence: None)
  Receive Date: 20051215
  Receipt Date: 20051130
  Transmission Date: 20060501
  Serious: Yes (Hospitalization)
  Sender: FDA-Public Use
  Company Number: PAR_0429_2005

PATIENT
  Age: 62 Year
  Sex: Male

DRUGS (1)
  1. ALLOPURINOL [Suspect]
     Indication: HYPERURICAEMIA
     Dosage: 600 MG QDAY; UNK

REACTIONS (13)
  - ANURIA [None]
  - AZOTAEMIA [None]
  - DRUG HYPERSENSITIVITY [None]
  - EOSINOPHILIA [None]
  - ERYTHEMA MULTIFORME [None]
  - HAEMODIALYSIS [None]
  - HEPATIC STEATOSIS [None]
  - LEUKOCYTOSIS [None]
  - PROTEINURIA [None]
  - RENAL FAILURE CHRONIC [None]
  - RENAL IMPAIRMENT [None]
  - RENAL INJURY [None]
  - URINARY TRACT INFECTION ENTEROCOCCAL [None]
